FAERS Safety Report 6301667-3 (Version None)
Quarter: 2009Q3

REPORT INFORMATION
  Report Type: 
  Country: None (occurrence: None)
  Receive Date: 20090807
  Receipt Date: 20090728
  Transmission Date: 20100115
  Serious: Yes (Other)
  Sender: FDA-Public Use
  Company Number: PHHY2009US31853

PATIENT
  Age: 71 Year
  Sex: Male

DRUGS (4)
  1. INTERLEUKIN-2 [Suspect]
     Indication: METASTATIC RENAL CELL CARCINOMA
     Dosage: TWO INDUCTION CYCLES OF INTERLEUKIN 2 AND INTERFERON ALPHA 2A GIVEN ON DAYS 1 AND 14
  2. INTERFERON ALFA-2A [Suspect]
     Indication: METASTATIC RENAL CELL CARCINOMA
     Dosage: 6 MIU EVERY OTHER DAY
     Route: 058
  3. VACCINES [Concomitant]
     Indication: METASTATIC RENAL CELL CARCINOMA
     Dosage: 1 ? 10^7 CELLS/1 ML LACTATED RINGER'S SOLUTION
  4. BEVACIZUMAB [Concomitant]
     Indication: METASTATIC RENAL CELL CARCINOMA

REACTIONS (5)
  - DERMATITIS [None]
  - DISEASE PROGRESSION [None]
  - HYPOALBUMINAEMIA [None]
  - HYPOPHOSPHATAEMIA [None]
  - LYMPHOPENIA [None]
